FAERS Safety Report 6776234-8 (Version None)
Quarter: 2010Q2

REPORT INFORMATION
  Report Type: 
  Country: None (occurrence: None)
  Receive Date: 20100615
  Receipt Date: 20100607
  Transmission Date: 20101027
  Serious: Yes (Hospitalization)
  Sender: FDA-Public Use
  Company Number: 903997-2010-00009

PATIENT
  Sex: Female

DRUGS (2)
  1. LEVULAN [Suspect]
     Dates: start: 20100531
  2. DIURETIC [Concomitant]

REACTIONS (3)
  - BACTERIAL INFECTION [None]
  - HYPONATRAEMIA [None]
  - VOMITING [None]
